FAERS Safety Report 8397855-5 (Version None)
Quarter: 2012Q2

REPORT INFORMATION
  Report Type: 
  Country: None (occurrence: None)
  Receive Date: 20120531
  Receipt Date: 20120524
  Transmission Date: 20120825
  Serious: Yes (Other)
  Sender: FDA-Public Use
  Company Number: PHEH2012US010875

PATIENT
  Sex: Female

DRUGS (21)
  1. DIGOXIN [Concomitant]
  2. COENZYME Q10 [Concomitant]
  3. IMODIUM [Concomitant]
  4. OMEPRAZOLE [Concomitant]
  5. ZYRTEC [Concomitant]
  6. ASPIRIN [Concomitant]
  7. MULTI-VITAMINS [Concomitant]
  8. SUTENT [Concomitant]
  9. ST MARY'S THISTLE [Concomitant]
  10. VITAMIN D [Concomitant]
  11. GLEEVEC [Suspect]
     Dosage: 800 MG, DAILY
     Dates: start: 20110801
  12. CHOLESTYRAMINE [Concomitant]
     Route: 048
  13. GLEEVEC [Suspect]
     Dosage: 400 MG, UNK
     Dates: start: 20050101, end: 20100801
  14. CLAVULANATE POTASSIUM [Concomitant]
  15. AMOXICILLIN [Concomitant]
  16. GLEEVEC [Suspect]
     Dosage: 600 MG, DAILY
     Dates: start: 20100801, end: 20110801
  17. OXYCODONE HCL [Concomitant]
  18. PROVENTIL-HFA [Concomitant]
  19. TRAMADOL HCL [Concomitant]
  20. METOCLOPRAMIDE [Concomitant]
  21. CALCIUM [Concomitant]

REACTIONS (1)
  - GASTROINTESTINAL STROMAL TUMOUR [None]
